FAERS Safety Report 7385348-3 (Version None)
Quarter: 2011Q1

REPORT INFORMATION
  Report Type: 
  Country: None (occurrence: None)
  Receive Date: 20110330
  Receipt Date: 20101029
  Transmission Date: 20110831
  Serious: No
  Sender: FDA-Public Use
  Company Number: US-MYLANLABS-2010S1018199

PATIENT
  Age: 49 Year
  Sex: Female
  Weight: 163.3 kg

DRUGS (5)
  1. OMEPRAZOLE [Concomitant]
  2. XANAX [Concomitant]
  3. EMSAM [Suspect]
     Route: 062
  4. EMSAM [Suspect]
     Indication: DEPRESSION
     Route: 062
  5. COUMADIN [Concomitant]

REACTIONS (1)
  - PRURITUS [None]
